FAERS Safety Report 22653568 (Version 4)
Quarter: 2023Q4

REPORT INFORMATION
  Report Type: Spontaneous
  Country: DE (occurrence: DE)
  Receive Date: 20230629
  Receipt Date: 20231025
  Transmission Date: 20240109
  Serious: Yes (Hospitalization)
  Sender: FDA-Public Use
  Company Number: DE-ALXN-A202302762

PATIENT
  Age: 48 Year
  Sex: Female
  Weight: 52 kg

DRUGS (1)
  1. STRENSIQ [Suspect]
     Active Substance: ASFOTASE ALFA
     Indication: Hypophosphatasia
     Dosage: 100 MG, UNK
     Route: 058
     Dates: start: 20221212

REACTIONS (7)
  - Rehabilitation therapy [Unknown]
  - Peripheral swelling [Recovered/Resolved]
  - Joint swelling [Not Recovered/Not Resolved]
  - Swelling face [Recovered/Resolved]
  - Suspected COVID-19 [Unknown]
  - Arthralgia [Not Recovered/Not Resolved]
  - Post-acute COVID-19 syndrome [Unknown]

NARRATIVE: CASE EVENT DATE: 20221212
